FAERS Safety Report 9175193 (Version 5)
Quarter: 2014Q1

REPORT INFORMATION
  Report Type: Report from Study
  Country: US (occurrence: US)
  Receive Date: 20130320
  Receipt Date: 20140212
  Transmission Date: 20141002
  Serious: Yes (Hospitalization)
  Sender: FDA-Public Use
  Company Number: US-ROCHE-1190247

PATIENT
  Age: 65 Year
  Sex: Female
  Weight: 49 kg

DRUGS (22)
  1. TRASTUZUMAB EMTANSINE [Suspect]
     Indication: BREAST CANCER METASTATIC
     Dosage: LAST DOSE PRIOR TO SAE (181 MG): 05/FEB/2013. MOST RECENT DOSE OF 178MG ON 26/FEB/2013 PRIOR TO RIGH
     Route: 042
     Dates: start: 20120717
  2. ENOXAPARIN [Concomitant]
     Indication: JUGULAR VEIN THROMBOSIS
     Route: 065
     Dates: start: 201111
  3. ALBUTEROL [Concomitant]
     Indication: ASTHMA
     Route: 065
     Dates: start: 2004
  4. LEXAPRO [Concomitant]
     Indication: DEPRESSION
     Route: 065
     Dates: start: 2004
  5. FLUTICASONE [Concomitant]
     Indication: ASTHMA
     Route: 065
     Dates: start: 2004
  6. GABAPENTIN [Concomitant]
     Indication: CONVULSION
     Route: 065
     Dates: start: 2007
  7. LAMOTRIGINE [Concomitant]
     Indication: CONVULSION
     Route: 065
     Dates: start: 2007
  8. NAMENDA [Concomitant]
     Indication: DEMENTIA
     Route: 065
     Dates: start: 2009
  9. NEOMYCIN/POLYMYXIN B [Concomitant]
     Indication: INFECTION PROPHYLAXIS
     Route: 065
     Dates: start: 201206
  10. OMEPRAZOLE [Concomitant]
     Indication: GASTROOESOPHAGEAL REFLUX DISEASE
     Route: 065
     Dates: start: 2005
  11. IMITREX [Concomitant]
     Indication: MIGRAINE
     Route: 065
     Dates: start: 2006
  12. CETIRIZINE [Concomitant]
     Indication: SEASONAL ALLERGY
     Route: 065
     Dates: start: 2008
  13. ZOFRAN [Concomitant]
     Indication: PROPHYLAXIS OF NAUSEA AND VOMITING
     Route: 065
     Dates: start: 20120717
  14. SENNA [Concomitant]
     Indication: CONSTIPATION
     Route: 065
     Dates: start: 201208, end: 201208
  15. ALLEGRA [Concomitant]
     Indication: HYPERSENSITIVITY
     Route: 065
     Dates: start: 201208, end: 201208
  16. IBUPROFEN [Concomitant]
     Indication: PAIN MANAGEMENT
     Route: 065
     Dates: start: 201208, end: 201208
  17. CIPROFLOXACIN [Concomitant]
     Indication: URINARY TRACT INFECTION
     Route: 065
     Dates: start: 20130123, end: 20130130
  18. DOCUSATE SODIUM [Concomitant]
     Indication: CONSTIPATION
     Route: 065
     Dates: start: 201203
  19. DIPHENOXYLATE/ATROPINE [Concomitant]
     Indication: DIARRHOEA
     Route: 065
     Dates: start: 201302
  20. NAPHAZOLINE HYDROCHLORIDE/PHENIRAMINE MALEATE [Concomitant]
     Indication: EYE PAIN
     Route: 065
     Dates: start: 201302
  21. OLOPATADINE [Concomitant]
     Indication: EYE PAIN
     Route: 065
     Dates: start: 201302
  22. NYSTATIN POWDER [Concomitant]
     Indication: FUNGAL INFECTION
     Route: 065
     Dates: start: 20130409

REACTIONS (2)
  - Cellulitis [Recovered/Resolved]
  - Cellulitis [Recovered/Resolved]
